FAERS Safety Report 25590733 (Version 2)
Quarter: 2025Q3

REPORT INFORMATION
  Report Type: Spontaneous
  Country: US (occurrence: US)
  Receive Date: 20250722
  Receipt Date: 20250725
  Transmission Date: 20251020
  Serious: No
  Sender: BAYER HEALTHCARE PHARMACEUTICALS INC.
  Company Number: US-BAYER-2025A095109

PATIENT
  Age: 18 Year
  Sex: Female

DRUGS (1)
  1. KYLEENA [Suspect]
     Active Substance: LEVONORGESTREL
     Indication: Contraception
     Dosage: 17.5?G/DAY
     Route: 015
     Dates: start: 20250430

REACTIONS (2)
  - Device dislocation [Not Recovered/Not Resolved]
  - Pelvic pain [None]

NARRATIVE: CASE EVENT DATE: 20250711
